FAERS Safety Report 25628426 (Version 1)
Quarter: 2025Q3

REPORT INFORMATION
  Report Type: Report from Study
  Country: US (occurrence: US)
  Receive Date: 20250731
  Receipt Date: 20250731
  Transmission Date: 20251020
  Serious: Yes (Other)
  Sender: ABBVIE
  Company Number: US-ABBVIE-6393983

PATIENT
  Age: 51 Year
  Sex: Female

DRUGS (1)
  1. RINVOQ [Suspect]
     Active Substance: UPADACITINIB
     Indication: Rheumatoid arthritis
     Dosage: STRENGTH:15MG?LAST ADMIN DATE: 2025
     Route: 048
     Dates: start: 202503

REACTIONS (4)
  - Joint arthroplasty [Unknown]
  - Ear infection [Unknown]
  - Respiratory tract infection [Unknown]
  - Bone operation [Unknown]

NARRATIVE: CASE EVENT DATE: 20250101
